FAERS Safety Report 13610294 (Version 1)
Quarter: 2017Q2

REPORT INFORMATION
  Report Type: Spontaneous
  Country: US (occurrence: US)
  Receive Date: 20170602
  Receipt Date: 20170602
  Transmission Date: 20170830
  Serious: Yes (Hospitalization)
  Sender: FDA-Public Use
  Company Number: None

PATIENT
  Age: 50 Year
  Sex: Female

DRUGS (1)
  1. ATORVASTATIN [Suspect]
     Active Substance: ATORVASTATIN
     Indication: HYPERLIPIDAEMIA
     Route: 048
     Dates: start: 20170427, end: 20170525

REACTIONS (12)
  - Hepatic enzyme increased [None]
  - Abdominal pain [None]
  - Nausea [None]
  - Metabolic acidosis [None]
  - Alanine aminotransferase increased [None]
  - Gastroenteritis viral [None]
  - Hyponatraemia [None]
  - Hypertriglyceridaemia [None]
  - Aspartate aminotransferase increased [None]
  - Hyperhidrosis [None]
  - Diarrhoea [None]
  - Vomiting [None]

NARRATIVE: CASE EVENT DATE: 20170525
